FAERS Safety Report 22245364 (Version 1)
Quarter: 2023Q2

REPORT INFORMATION
  Report Type: Spontaneous
  Country: US (occurrence: US)
  Receive Date: 20230424
  Receipt Date: 20230424
  Transmission Date: 20230722
  Serious: No
  Sender: FDA-Public Use
  Company Number: US-drreddys-SPO/USA/23/0163507

PATIENT
  Age: 34 Year
  Sex: Female

DRUGS (2)
  1. ACCUTANE [Suspect]
     Active Substance: ISOTRETINOIN
     Indication: Product used for unknown indication
     Dosage: RMA ISSUE DATE: 26 OCTOBER 2022 10:43:06 AM, 28 DECEMBER 2022 10:48:18 AM, 02 FEBRUARY 2023 12:32:14
  2. ACCUTANE [Suspect]
     Active Substance: ISOTRETINOIN
     Dosage: RMA ISSUE DATE: 23 NOVEMBER 2022 04:32:11 PM

REACTIONS (2)
  - Condition aggravated [Unknown]
  - Dry eye [Unknown]
